FAERS Safety Report 4534664-9 (Version None)
Quarter: 2004Q4

REPORT INFORMATION
  Report Type: 
  Country: None (occurrence: None)
  Receive Date: 20041214
  Receipt Date: 20041020
  Transmission Date: 20050328
  Serious: No
  Sender: FDA-Public Use
  Company Number: 2004240292US

PATIENT

DRUGS (1)
  1. BEXTRA [Suspect]
     Dosage: 20 MG
     Dates: start: 20020101

REACTIONS (3)
  - CARDIAC DISORDER [None]
  - HYPOAESTHESIA [None]
  - PARAESTHESIA [None]
